FAERS Safety Report 6305503-0 (Version None)
Quarter: 2009Q3

REPORT INFORMATION
  Report Type: 
  Country: None (occurrence: None)
  Receive Date: 20090807
  Receipt Date: 20090722
  Transmission Date: 20100115
  Serious: Yes (Hospitalization)
  Sender: FDA-Public Use
  Company Number: 2009002159

PATIENT
  Age: 73 Year
  Sex: Male

DRUGS (7)
  1. ERLOTINIB (ERLOTINIB) (TABLET) (ERLOTINIB) [Suspect]
     Indication: LUNG NEOPLASM MALIGNANT
     Dosage: 150 MG, QD, ORAL
     Route: 048
     Dates: start: 20090625, end: 20090630
  2. TAXOTERE [Suspect]
     Indication: LUNG NEOPLASM MALIGNANT
     Dosage: 150 MG; INTRAVENOUS
     Route: 042
     Dates: start: 20090622
  3. PANTOPRAZOLE SODIUM [Concomitant]
  4. ZODATRON [Concomitant]
  5. TRAMADOL HCL [Concomitant]
  6. GABAPENTIN [Concomitant]
  7. MOVATEC (MELOXICAM) [Concomitant]

REACTIONS (2)
  - FEBRILE NEUTROPENIA [None]
  - WHITE BLOOD CELL COUNT DECREASED [None]
